FAERS Safety Report 16136653 (Version 4)
Quarter: 2020Q3

REPORT INFORMATION
  Report Type: Report from Study
  Country: US (occurrence: US)
  Receive Date: 20190329
  Receipt Date: 20200921
  Transmission Date: 20201102
  Serious: Yes (Death, Hospitalization, Other)
  Sender: FDA-Public Use
  Company Number: PHEH2019US012840

PATIENT
  Age: 88 Year
  Sex: Male

DRUGS (1)
  1. PROMACTA [Suspect]
     Active Substance: ELTROMBOPAG OLAMINE
     Indication: PLATELET COUNT DECREASED
     Dosage: 75 MG
     Route: 048
     Dates: end: 20200616

REACTIONS (6)
  - Malaise [Unknown]
  - Dementia [Unknown]
  - General physical health deterioration [Unknown]
  - Back injury [Unknown]
  - Fall [Fatal]
  - Humerus fracture [Fatal]

NARRATIVE: CASE EVENT DATE: 20200612
